FAERS Safety Report 9406078 (Version 1)
Quarter: 2013Q3

REPORT INFORMATION
  Report Type: Spontaneous
  Country: US (occurrence: US)
  Receive Date: 20130717
  Receipt Date: 20130717
  Transmission Date: 20140515
  Serious: Yes (Death, Other)
  Sender: FDA-Public Use
  Company Number: US-PFIZER INC-2013210097

PATIENT
  Sex: Male

DRUGS (1)
  1. EFFEXOR [Suspect]
     Dosage: UNK
     Dates: end: 20130627

REACTIONS (5)
  - Death [Fatal]
  - Loss of consciousness [Unknown]
  - Hyperhidrosis [Unknown]
  - Malaise [Unknown]
  - Malaise [Unknown]
